FAERS Safety Report 7895187-2 (Version None)
Quarter: 2011Q4

REPORT INFORMATION
  Report Type: 
  Country: None (occurrence: None)
  Receive Date: 20111106
  Receipt Date: 20110823
  Transmission Date: 20120403
  Serious: Yes (Hospitalization)
  Sender: FDA-Public Use
  Company Number: US-AMGEN-USASP2011035165

PATIENT
  Age: 72 Year
  Sex: Female
  Weight: 116.55 kg

DRUGS (1)
  1. ENBREL [Suspect]
     Indication: RHEUMATOID ARTHRITIS
     Dosage: 50 MG, QWK
     Route: 030
     Dates: start: 20040301

REACTIONS (3)
  - DIVERTICULITIS [None]
  - GLAUCOMA [None]
  - RHEUMATOID ARTHRITIS [None]
